FAERS Safety Report 10084706 (Version 4)
Quarter: 2014Q2

REPORT INFORMATION
  Report Type: Spontaneous
  Country: US (occurrence: US)
  Receive Date: 20140417
  Receipt Date: 20140626
  Transmission Date: 20141212
  Serious: Yes (Hospitalization)
  Sender: FDA-Public Use
  Company Number: US-GLAXOSMITHKLINE-A1069695A

PATIENT
  Sex: Male

DRUGS (6)
  1. JALYN [Suspect]
     Indication: PRODUCT USED FOR UNKNOWN INDICATION
     Route: 065
     Dates: start: 20110516
  2. REQUIP XL [Suspect]
     Indication: PRODUCT USED FOR UNKNOWN INDICATION
     Dosage: 2MG UNKNOWN
     Route: 065
     Dates: start: 20090304
  3. COREG [Suspect]
     Indication: PRODUCT USED FOR UNKNOWN INDICATION
     Dosage: 6.25MG UNKNOWN
     Route: 065
     Dates: start: 20050215, end: 20060523
  4. LANOXIN [Suspect]
     Indication: PRODUCT USED FOR UNKNOWN INDICATION
     Dosage: .125MG UNKNOWN
     Route: 065
     Dates: start: 20060516
  5. AVODART [Suspect]
     Indication: PRODUCT USED FOR UNKNOWN INDICATION
     Dosage: .5MG UNKNOWN
     Route: 065
     Dates: start: 20050222, end: 20110516
  6. REQUIP [Suspect]
     Indication: PRODUCT USED FOR UNKNOWN INDICATION
     Dosage: 2MG UNKNOWN
     Dates: start: 20090217, end: 20090605

REACTIONS (8)
  - Implantable defibrillator insertion [Unknown]
  - Implantable defibrillator replacement [Unknown]
  - Parkinsonism [Unknown]
  - Investigation [Unknown]
  - Cardiac failure congestive [Unknown]
  - Pneumonia [Unknown]
  - Aspiration [Unknown]
  - Cardiac pacemaker insertion [Unknown]
